FAERS Safety Report 17902232 (Version 1)
Quarter: 2020Q2

REPORT INFORMATION
  Report Type: Spontaneous
  Country: US (occurrence: US)
  Receive Date: 20200616
  Receipt Date: 20200616
  Transmission Date: 20200714
  Serious: Yes (Other)
  Sender: FDA-Public Use
  Company Number: US-INDIVIOR LIMITED-INDV-125109-2020

PATIENT
  Age: 30 Year
  Sex: Male

DRUGS (1)
  1. SUBLOCADE [Suspect]
     Active Substance: BUPRENORPHINE
     Indication: DRUG DEPENDENCE
     Dosage: UNK, QMO
     Route: 065
     Dates: start: 202004

REACTIONS (2)
  - Drug delivery system removal [Recovered/Resolved]
  - Injection site necrosis [Not Recovered/Not Resolved]
